FAERS Safety Report 13354288 (Version 2)
Quarter: 2017Q2

REPORT INFORMATION
  Report Type: Spontaneous
  Country: CH (occurrence: FR)
  Receive Date: 20170321
  Receipt Date: 20170411
  Transmission Date: 20170830
  Serious: Yes (Hospitalization)
  Sender: FDA-Public Use
  Company Number: CH-LPDUSPRD-20170285

PATIENT
  Age: 44 Year
  Sex: Female

DRUGS (1)
  1. VENOFER [Suspect]
     Active Substance: IRON SUCROSE
     Dosage: 1 DOSAGE FORM
     Route: 041
     Dates: start: 20170217

REACTIONS (6)
  - Infusion site pain [Recovering/Resolving]
  - Infusion site discolouration [Not Recovered/Not Resolved]
  - Extravasation [Recovering/Resolving]
  - Infusion site oedema [Recovering/Resolving]
  - Drug monitoring procedure not performed [Unknown]
  - Skin sensitisation [Not Recovered/Not Resolved]

NARRATIVE: CASE EVENT DATE: 20170217
